FAERS Safety Report 21227166 (Version 1)
Quarter: 2022Q3

REPORT INFORMATION
  Report Type: Spontaneous
  Country: AR (occurrence: AR)
  Receive Date: 20220818
  Receipt Date: 20220818
  Transmission Date: 20221027
  Serious: Yes (Other)
  Sender: FDA-Public Use
  Company Number: AR-PFIZER INC-PV202200044259

PATIENT
  Age: 67 Year
  Sex: Female

DRUGS (1)
  1. IBRANCE [Suspect]
     Active Substance: PALBOCICLIB
     Dosage: UNK

REACTIONS (18)
  - Cholecystectomy [Unknown]
  - Liver disorder [Unknown]
  - Platelet count decreased [Unknown]
  - Albumin globulin ratio increased [Unknown]
  - Red blood cell count decreased [Unknown]
  - Mean cell haemoglobin increased [Unknown]
  - Blood glucose increased [Unknown]
  - Eosinophil count decreased [Unknown]
  - Basophil count decreased [Unknown]
  - Monocyte count increased [Unknown]
  - Pulmonary calcification [Unknown]
  - Adrenomegaly [Unknown]
  - Diverticulum intestinal [Unknown]
  - Osteopenia [Unknown]
  - Bone density increased [Unknown]
  - Uterine enlargement [Unknown]
  - Vaginal disorder [Unknown]
  - White blood cell count decreased [Unknown]

NARRATIVE: CASE EVENT DATE: 20200511
